FAERS Safety Report 4656530-0 (Version None)
Quarter: 2005Q2

REPORT INFORMATION
  Report Type: 
  Country: None (occurrence: None)
  Receive Date: 20050505
  Receipt Date: 20050422
  Transmission Date: 20051028
  Serious: Yes (Disabling, Other)
  Sender: FDA-Public Use
  Company Number: 2004005322

PATIENT
  Age: 55 Year
  Sex: Female
  Weight: 63 kg

DRUGS (1)
  1. ZITHROMAX [Suspect]
     Indication: LUNG DISORDER
     Dosage: 500 MG (DAILY), ORAL
     Route: 048
     Dates: start: 20030501

REACTIONS (2)
  - AGEUSIA [None]
  - ANOSMIA [None]
